FAERS Safety Report 23314241 (Version 1)
Quarter: 2023Q4

REPORT INFORMATION
  Report Type: Spontaneous
  Country: CA (occurrence: CA)
  Receive Date: 20231219
  Receipt Date: 20231219
  Transmission Date: 20240109
  Serious: Yes (Death, Other)
  Sender: FDA-Public Use
  Company Number: CA-ACELLA PHARMACEUTICALS, LLC-2023ALO00097

PATIENT
  Age: 69 Year
  Sex: Male

DRUGS (1)
  1. CARBIDOPA LEVODOPA [Suspect]
     Active Substance: CARBIDOPA\LEVODOPA
     Dosage: LEVODOPA DOSE 1850 MG DAILY
     Route: 048

REACTIONS (2)
  - Peripheral sensory neuropathy [Fatal]
  - Vitamin B6 deficiency [Fatal]

NARRATIVE: CASE EVENT DATE: 20180101
